FAERS Safety Report 17386984 (Version 1)
Quarter: 2020Q1

REPORT INFORMATION
  Report Type: Spontaneous
  Country: PA (occurrence: PA)
  Receive Date: 20200206
  Receipt Date: 20200206
  Transmission Date: 20200409
  Serious: Yes (Other)
  Sender: FDA-Public Use
  Company Number: PA-BAYER-2020-016870

PATIENT
  Age: 32 Year
  Sex: Female

DRUGS (1)
  1. MIRENA [Suspect]
     Active Substance: LEVONORGESTREL
     Dosage: 20 ?G PER DAY/ CONTINUOUSLY
     Route: 015

REACTIONS (9)
  - Ectopic pregnancy with contraceptive device [None]
  - Cervical cyst [None]
  - Adnexa uteri mass [None]
  - Drug ineffective [None]
  - Pelvic pain [None]
  - Cervicitis [None]
  - Haematosalpinx [None]
  - Serositis [None]
  - Intra-abdominal haemorrhage [None]
